FAERS Safety Report 8785670 (Version 1)
Quarter: 2012Q4

REPORT INFORMATION
  Report Type: Spontaneous
  Country: DE (occurrence: None)
  Receive Date: 20120831
  Receipt Date: 20120831
  Transmission Date: 20130627
  Serious: Yes (Other)
  Sender: FDA-Public Use
  Company Number: 2012P1055133

PATIENT
  Age: 70 Year
  Sex: Female

DRUGS (7)
  1. AMIODARONE [Suspect]
     Indication: TINEA
  2. LOSARTAN [Suspect]
     Indication: HYPERTONIA
  3. PHENPROCOUMON [Suspect]
     Indication: ANTICOAGULANT THERAPY
  4. TERBINAFINE HYDOCHLORIDE [Suspect]
     Indication: TINEA
  5. TORASEMIDE [Suspect]
     Indication: DIURETIC THERAPY
  6. BISOPROLOL [Concomitant]
  7. ASPIRIN [Concomitant]

REACTIONS (2)
  - Lupus-like syndrome [None]
  - Disease recurrence [None]
